FAERS Safety Report 24391086 (Version 1)
Quarter: 2024Q4

REPORT INFORMATION
  Report Type: Spontaneous
  Country: JP (occurrence: JP)
  Receive Date: 20241003
  Receipt Date: 20241003
  Transmission Date: 20250115
  Serious: Yes (Hospitalization)
  Sender: SUNOVION
  Company Number: JP-SUMITOMO PHARMA SWITZERLAND GMBH-2024SPA003356

PATIENT

DRUGS (9)
  1. VIBEGRON [Suspect]
     Active Substance: VIBEGRON
     Indication: Pollakiuria
     Dosage: 50 MG
     Route: 048
     Dates: start: 20200602, end: 20220328
  2. HERBESSER [Concomitant]
     Active Substance: DILTIAZEM HYDROCHLORIDE
     Dosage: UNK
     Route: 048
     Dates: start: 20140108
  3. ASPIRIN [Concomitant]
     Active Substance: ASPIRIN
     Dosage: UNK
     Route: 048
     Dates: start: 20140904
  4. CLOPIDOGREL [Concomitant]
     Active Substance: CLOPIDOGREL BISULFATE
     Dosage: UNK
     Route: 048
     Dates: start: 20160209
  5. FAMOTIDINE [Concomitant]
     Active Substance: FAMOTIDINE
     Dosage: UNK
     Route: 048
     Dates: start: 20191028
  6. MAGNESIUM OXIDE [Concomitant]
     Active Substance: MAGNESIUM OXIDE
     Dosage: UNK
     Route: 048
     Dates: start: 20180806
  7. PITAVASTATIN CALCIUM [Concomitant]
     Active Substance: PITAVASTATIN CALCIUM
     Dosage: UNK
     Route: 048
     Dates: start: 20220118, end: 20231012
  8. CLENBUTEROL [Concomitant]
     Active Substance: CLENBUTEROL
     Dosage: 10 MCG
     Route: 048
     Dates: start: 20200602, end: 20230925
  9. PROPIVERINE [Concomitant]
     Active Substance: PROPIVERINE
     Dosage: UNK
     Route: 048
     Dates: end: 20230925

REACTIONS (1)
  - Hepatic function abnormal [Recovered/Resolved]

NARRATIVE: CASE EVENT DATE: 20230821
